FAERS Safety Report 9036302 (Version 1)
Quarter: 2013Q1

REPORT INFORMATION
  Report Type: Report from Study
  Country: US (occurrence: US)
  Receive Date: 20130129
  Receipt Date: 20130129
  Transmission Date: 20140127
  Serious: No
  Sender: FDA-Public Use
  Company Number: US-ABBOTT-12P-163-0896656-00

PATIENT
  Age: 53 Year
  Sex: Female

DRUGS (6)
  1. HUMIRA 40 MG/0.8 ML PEN [Suspect]
     Indication: PSORIATIC ARTHROPATHY
     Dates: start: 201107
  2. PREDNISONE [Concomitant]
     Indication: PSORIATIC ARTHROPATHY
  3. HYDROCHLOROTHIAZIDE [Concomitant]
     Indication: BLOOD PRESSURE
  4. FOSAMAX [Concomitant]
     Indication: OSTEOPOROSIS
  5. CALCIUM W/VITAMIN D [Concomitant]
     Indication: OSTEOPOROSIS
  6. NAPROXEN [Concomitant]
     Indication: PAIN

REACTIONS (1)
  - Nasopharyngitis [Not Recovered/Not Resolved]
